FAERS Safety Report 14975690 (Version 1)
Quarter: 2018Q2

REPORT INFORMATION
  Report Type: Report from Study
  Country: US (occurrence: US)
  Receive Date: 20180605
  Receipt Date: 20180605
  Transmission Date: 20180711
  Serious: Yes (Death, Other)
  Sender: FDA-Public Use
  Company Number: US-GILEAD-2018-0342127

PATIENT
  Age: 20 Year
  Sex: Female

DRUGS (1)
  1. AZTREONAM LYSINE [Suspect]
     Active Substance: AZTREONAM LYSINE
     Indication: PRODUCT USED FOR UNKNOWN INDICATION
     Dosage: UNK, THREE TIMES DAILY EVERY OTHER MONTH
     Route: 055
     Dates: start: 20130520

REACTIONS (1)
  - Death [Fatal]

NARRATIVE: CASE EVENT DATE: 20180503
